FAERS Safety Report 11968290 (Version 2)
Quarter: 2016Q1

REPORT INFORMATION
  Report Type: Spontaneous
  Country: FR (occurrence: FR)
  Receive Date: 20160127
  Receipt Date: 20160211
  Transmission Date: 20160526
  Serious: Yes (Hospitalization)
  Sender: FDA-Public Use
  Company Number: FR-ROCHE-1699971

PATIENT
  Age: 83 Year
  Sex: Male

DRUGS (3)
  1. TIAPRIDAL [Suspect]
     Active Substance: TIAPRIDE HYDROCHLORIDE
     Indication: AGITATION
     Route: 048
     Dates: start: 20160113, end: 20160113
  2. VALIUM [Suspect]
     Active Substance: DIAZEPAM
     Indication: AGITATION
     Route: 048
     Dates: start: 20160113, end: 20160113
  3. LOXAPAC [Concomitant]
     Active Substance: LOXAPINE SUCCINATE

REACTIONS (3)
  - Hypothermia [Not Recovered/Not Resolved]
  - Miosis [Not Recovered/Not Resolved]
  - Altered state of consciousness [Not Recovered/Not Resolved]

NARRATIVE: CASE EVENT DATE: 20160113
